FAERS Safety Report 16785588 (Version 1)
Quarter: 2019Q4

REPORT INFORMATION
  Report Type: Spontaneous
  Country: IN (occurrence: IN)
  Receive Date: 20190907
  Receipt Date: 20190907
  Transmission Date: 20200122
  Serious: Yes (Hospitalization)
  Sender: FDA-Public Use
  Company Number: None

PATIENT
  Age: 21 Year
  Sex: Male
  Weight: 75 kg

DRUGS (1)
  1. ATROPINE SULPHATE OPTHALMIC [Suspect]
     Active Substance: ATROPINE SULFATE
     Dates: start: 20190905, end: 20190905

REACTIONS (4)
  - Disturbance in attention [None]
  - Hypoaesthesia [None]
  - Loss of control of legs [None]
  - Feeling abnormal [None]

NARRATIVE: CASE EVENT DATE: 20190905
